FAERS Safety Report 5273884-5 (Version None)
Quarter: 2007Q1

REPORT INFORMATION
  Report Type: 
  Country: None (occurrence: None)
  Receive Date: 20070323
  Receipt Date: 20070313
  Transmission Date: 20070707
  Serious: Yes (Other)
  Sender: FDA-Public Use
  Company Number: GB-ABBOTT-07P-167-0361907-00

PATIENT
  Age: 46 Year
  Sex: Female

DRUGS (4)
  1. CLARITHROMYCIN [Suspect]
     Indication: LOWER RESPIRATORY TRACT INFECTION
     Route: 042
  2. CEFUROXIME [Suspect]
     Indication: LOWER RESPIRATORY TRACT INFECTION
     Route: 042
  3. TRIMETHOPRIM [Suspect]
     Indication: URINARY TRACT INFECTION
     Dosage: NOT REPORTED
  4. OXYGEN [Concomitant]
     Indication: LOWER RESPIRATORY TRACT INFECTION
     Dosage: NOT REPORTED

REACTIONS (3)
  - CLOSTRIDIUM DIFFICILE COLITIS [None]
  - MEGACOLON [None]
  - SEPSIS [None]
